FAERS Safety Report 17097226 (Version 1)
Quarter: 2019Q4

REPORT INFORMATION
  Report Type: Spontaneous
  Country: US (occurrence: US)
  Receive Date: 20191129
  Receipt Date: 20191129
  Transmission Date: 20200122
  Serious: No
  Sender: FDA-Public Use
  Company Number: None

PATIENT
  Age: 62 Year
  Sex: Male
  Weight: 81 kg

DRUGS (2)
  1. WARFARIN 5MG [Suspect]
     Active Substance: WARFARIN
  2. RANITIDINE 300MG TAB AMN [Suspect]
     Active Substance: RANITIDINE
     Indication: GASTRIC DISORDER
     Dosage: ?          QUANTITY:1 TABLET(S);?
     Route: 048
     Dates: start: 20190517, end: 20190523

REACTIONS (4)
  - Dyspnoea [None]
  - Vision blurred [None]
  - Abdominal pain upper [None]
  - Memory impairment [None]

NARRATIVE: CASE EVENT DATE: 20190517
